FAERS Safety Report 11963190 (Version 1)
Quarter: 2016Q1

REPORT INFORMATION
  Report Type: Report from Study
  Country: US (occurrence: US)
  Receive Date: 20160126
  Receipt Date: 20160126
  Transmission Date: 20160526
  Serious: No
  Sender: FDA-Public Use
  Company Number: US-ABBVIE-15K-163-1379656-00

PATIENT
  Sex: Female

DRUGS (1)
  1. HUMIRA [Suspect]
     Active Substance: ADALIMUMAB
     Indication: RHEUMATOID ARTHRITIS
     Route: 058
     Dates: start: 201503

REACTIONS (10)
  - Nail ridging [Unknown]
  - Influenza like illness [Unknown]
  - Fatigue [Unknown]
  - Neuropathy peripheral [Unknown]
  - Palpitations [Unknown]
  - Onychoclasis [Unknown]
  - Weight increased [Unknown]
  - Amnesia [Unknown]
  - Oedema peripheral [Unknown]
  - Chromaturia [Unknown]

NARRATIVE: CASE EVENT DATE: 2015
